FAERS Safety Report 5445818-1 (Version None)
Quarter: 2007Q3

REPORT INFORMATION
  Report Type: 
  Country: None (occurrence: None)
  Receive Date: 20070907
  Receipt Date: 20070828
  Transmission Date: 20080115
  Serious: Yes (Other)
  Sender: FDA-Public Use
  Company Number: FR-RB-006550-07

PATIENT
  Age: 34 Year
  Sex: Male

DRUGS (5)
  1. SUBUTEX [Suspect]
     Indication: DRUG WITHDRAWAL MAINTENANCE THERAPY
     Route: 060
  2. SUBUTEX [Suspect]
     Route: 060
  3. SUBUTEX [Suspect]
     Route: 060
  4. ENBREL [Suspect]
     Indication: ARTHROPATHY
     Route: 065
  5. ENBREL [Suspect]
     Route: 065

REACTIONS (3)
  - DRUG EFFECT DECREASED [None]
  - DRUG INTERACTION [None]
  - DRUG WITHDRAWAL SYNDROME [None]
